FAERS Safety Report 6750233-4 (Version None)
Quarter: 2010Q2

REPORT INFORMATION
  Report Type: 
  Country: None (occurrence: None)
  Receive Date: 20100601
  Receipt Date: 20100520
  Transmission Date: 20101027
  Serious: Yes (Other)
  Sender: FDA-Public Use
  Company Number: US-PFIZER INC-2010063564

PATIENT
  Sex: Female

DRUGS (2)
  1. AROMASIN [Suspect]
     Indication: BREAST CANCER
     Dosage: 25 MG, UNK
  2. GLUCOSAMINE [Concomitant]
     Dosage: UNK

REACTIONS (1)
  - JOINT STIFFNESS [None]
